FAERS Safety Report 23239712 (Version 1)
Quarter: 2023Q4

REPORT INFORMATION
  Report Type: Spontaneous
  Country: US (occurrence: None)
  Receive Date: 20231121
  Receipt Date: 20231121
  Transmission Date: 20240109
  Serious: Yes (Hospitalization)
  Sender: FDA-Public Use
  Company Number: None

PATIENT
  Age: 73 Year
  Sex: Male
  Weight: 89 kg

DRUGS (2)
  1. ROPINIROLE HYDROCHLORIDE [Suspect]
     Active Substance: ROPINIROLE HYDROCHLORIDE
     Dates: start: 20230606, end: 20230724
  2. QUETIAPINE [Suspect]
     Active Substance: QUETIAPINE
     Dates: end: 20230724

REACTIONS (5)
  - Therapy change [None]
  - Agitation [None]
  - Confusional state [None]
  - Wrong schedule [None]
  - Therapy cessation [None]

NARRATIVE: CASE EVENT DATE: 20230723
